FAERS Safety Report 12415925 (Version 2)
Quarter: 2016Q2

REPORT INFORMATION
  Report Type: Spontaneous
  Country: BR (occurrence: BR)
  Receive Date: 20160530
  Receipt Date: 20160608
  Transmission Date: 20160815
  Serious: Yes (Death, Hospitalization, Other)
  Sender: FDA-Public Use
  Company Number: BR-PFIZER INC-2016171402

PATIENT
  Age: 79 Year
  Sex: Male
  Weight: 90 kg

DRUGS (5)
  1. SUTENT [Suspect]
     Active Substance: SUNITINIB MALATE
     Dosage: 50 MG, CONTINUOUS
     Route: 048
     Dates: start: 20160311, end: 20160408
  2. TRAMAL [Concomitant]
     Active Substance: TRAMADOL
     Indication: PAIN
     Dosage: UNK
  3. INSULIN [Concomitant]
     Active Substance: INSULIN NOS
     Indication: DIABETES MELLITUS
     Dosage: UNK
  4. SUTENT [Suspect]
     Active Substance: SUNITINIB MALATE
     Indication: METASTATIC RENAL CELL CARCINOMA
     Dosage: 50 MG, ONCE DAILY, 4 WEEKS ON AND 2 WEEKS OFF
     Route: 048
     Dates: start: 20160311, end: 20160408
  5. PARACETAMOL [Concomitant]
     Active Substance: ACETAMINOPHEN
     Indication: PAIN
     Dosage: UNK

REACTIONS (8)
  - Acute respiratory failure [Fatal]
  - Disease progression [Fatal]
  - Metastatic renal cell carcinoma [Fatal]
  - Confusional state [Recovered/Resolved]
  - Insomnia [Recovered/Resolved]
  - Asthenia [Not Recovered/Not Resolved]
  - Aggression [Not Recovered/Not Resolved]
  - Pneumonia [Fatal]

NARRATIVE: CASE EVENT DATE: 201603
